FAERS Safety Report 9310552 (Version 1)
Quarter: 2013Q2

REPORT INFORMATION
  Report Type: Spontaneous
  Country: US (occurrence: US)
  Receive Date: 20130527
  Receipt Date: 20130527
  Transmission Date: 20140414
  Serious: No
  Sender: FDA-Public Use
  Company Number: US-PFIZER INC-2013159561

PATIENT
  Age: 70 Year
  Sex: Female
  Weight: 90.7 kg

DRUGS (5)
  1. CELEBREX [Suspect]
     Indication: ARTHRITIS
     Dosage: 200 MG, 3X/DAY
  2. CELEBREX [Suspect]
     Indication: FIBROMYALGIA
     Dosage: 100 MG, UNK
  3. CELEBREX [Suspect]
     Indication: POST POLIO SYNDROME
  4. PREMARIN [Suspect]
     Indication: RASH
     Dosage: UNK
     Route: 067
     Dates: start: 2011
  5. LYRICA [Suspect]
     Indication: FIBROMYALGIA
     Dosage: 100 MG, 2X/DAY

REACTIONS (1)
  - Gout [Unknown]
